FAERS Safety Report 9499031 (Version 4)
Quarter: 2013Q4

REPORT INFORMATION
  Report Type: Spontaneous
  Country: US (occurrence: US)
  Receive Date: 20130904
  Receipt Date: 20131127
  Transmission Date: 20140711
  Serious: Yes (Other)
  Sender: FDA-Public Use
  Company Number: CHPA2013US013768

PATIENT
  Age: 61 Year
  Sex: Female

DRUGS (4)
  1. BUCKLEY^S COUGH MIXTURE [Suspect]
     Indication: NASOPHARYNGITIS
     Dosage: TAKE A SWIG, 20 MINUTES LATER TAKE ANOTHER SWIG
     Route: 048
  2. BUCKLEY^S COUGH MIXTURE [Suspect]
     Indication: PULMONARY CONGESTION
  3. BUCKLEY^S COUGH MIXTURE [Suspect]
     Indication: LOWER RESPIRATORY TRACT INFECTION
  4. BUCKLEY^S COUGH MIXTURE [Suspect]
     Indication: COUGH

REACTIONS (7)
  - Cystitis interstitial [Not Recovered/Not Resolved]
  - Cystitis noninfective [Not Recovered/Not Resolved]
  - Bladder pain [Not Recovered/Not Resolved]
  - Bronchopneumonia [Recovered/Resolved]
  - Drug ineffective for unapproved indication [Unknown]
  - Wrong technique in drug usage process [Unknown]
  - Expired drug administered [Unknown]
